FAERS Safety Report 21839034 (Version 1)
Quarter: 2023Q1

REPORT INFORMATION
  Report Type: Spontaneous
  Country: FR (occurrence: FR)
  Receive Date: 20230109
  Receipt Date: 20230109
  Transmission Date: 20230417
  Serious: Yes (Congenital Anomaly)
  Sender: FDA-Public Use
  Company Number: None

PATIENT
  Weight: 6.2 kg

DRUGS (2)
  1. CYMBALTA [Suspect]
     Active Substance: DULOXETINE HYDROCHLORIDE
     Indication: Neuralgia
     Dosage: UNK UNK, UNKNOWN
     Route: 064
     Dates: start: 20211003, end: 20220628
  2. CYMBALTA [Suspect]
     Active Substance: DULOXETINE HYDROCHLORIDE
     Indication: Neuralgia
     Dosage: UNK UNK, UNKNOWN
     Route: 064
     Dates: start: 20211003, end: 20220628

REACTIONS (3)
  - Magnetic resonance imaging abnormal [Not Recovered/Not Resolved]
  - Hypotonia neonatal [Recovered/Resolved]
  - Foetal exposure during delivery [Unknown]

NARRATIVE: CASE EVENT DATE: 20220628
